FAERS Safety Report 5510278-9 (Version None)
Quarter: 2007Q4

REPORT INFORMATION
  Report Type: 
  Country: None (occurrence: None)
  Receive Date: 20071030
  Receipt Date: 20061003
  Transmission Date: 20080405
  Serious: Yes (Other)
  Sender: FDA-Public Use
  Company Number: HQWYE586304OCT06

PATIENT
  Age: 60 Year
  Sex: Female
  Weight: 56.3 kg

DRUGS (2)
  1. PREMARIN [Suspect]
     Indication: HORMONE REPLACEMENT THERAPY
     Dosage: 0.3 MG 1X PER 1 DAY, 0.625 MG AT UNSPECIFIED FREQUENCY
     Dates: start: 19990701, end: 20040901
  2. PREMARIN [Suspect]
     Indication: HORMONE REPLACEMENT THERAPY
     Dosage: 0.3 MG 1X PER 1 DAY, 0.625 MG AT UNSPECIFIED FREQUENCY
     Dates: start: 20040901

REACTIONS (7)
  - AGITATION [None]
  - ANXIETY [None]
  - CONDITION AGGRAVATED [None]
  - DRUG INEFFECTIVE [None]
  - MYOCARDIAL INFARCTION [None]
  - PHARMACEUTICAL PRODUCT COMPLAINT [None]
  - SPINAL DISORDER [None]
